FAERS Safety Report 18156563 (Version 1)
Quarter: 2020Q3

REPORT INFORMATION
  Report Type: Spontaneous
  Country: US (occurrence: US)
  Receive Date: 20200815
  Receipt Date: 20200815
  Transmission Date: 20201103
  Serious: Yes (Life-Threatening, Hospitalization, Disabling, Other)
  Sender: FDA-Public Use
  Company Number: None

PATIENT
  Age: 75 Year
  Sex: Male
  Weight: 78.93 kg

DRUGS (5)
  1. SINGULAIR [Concomitant]
     Active Substance: MONTELUKAST SODIUM
  2. CARFLIZOMIB [Concomitant]
     Active Substance: CARFILZOMIB
  3. ELIQUIS [Suspect]
     Active Substance: APIXABAN
     Indication: DEEP VEIN THROMBOSIS
     Dates: end: 20200531
  4. DARATUTAMAB [Concomitant]
  5. ELIQUIS [Suspect]
     Active Substance: APIXABAN
     Indication: THROMBOSIS PROPHYLAXIS
     Dates: end: 20200531

REACTIONS (6)
  - Cerebral haematoma [None]
  - Brain herniation [None]
  - Immune thrombocytopenia [None]
  - Infection [None]
  - Haemorrhage intracranial [None]
  - Subarachnoid haematoma [None]

NARRATIVE: CASE EVENT DATE: 20200601
